FAERS Safety Report 4662815-4 (Version None)
Quarter: 2005Q2

REPORT INFORMATION
  Report Type: 
  Country: None (occurrence: None)
  Receive Date: 20050512
  Receipt Date: 20050425
  Transmission Date: 20051028
  Serious: Yes (Other)
  Sender: FDA-Public Use
  Company Number: USA050496573

PATIENT
  Sex: Female

DRUGS (5)
  1. HUMULIN-HUMAN INSULIN [Suspect]
     Indication: DIABETES MELLITUS
  2. ENALAPRIL MALEATE [Concomitant]
  3. ASPIRIN [Suspect]
  4. MULTI-VITAMIN [Suspect]
  5. SYNTHROID [Concomitant]

REACTIONS (3)
  - BLINDNESS UNILATERAL [None]
  - PHARMACEUTICAL PRODUCT COMPLAINT [None]
  - RETINAL TEAR [None]
